FAERS Safety Report 13423848 (Version 4)
Quarter: 2017Q3

REPORT INFORMATION
  Report Type: Spontaneous
  Country: US (occurrence: US)
  Receive Date: 20170410
  Receipt Date: 20170817
  Transmission Date: 20171127
  Serious: Yes (Hospitalization, Other)
  Sender: FDA-Public Use
  Company Number: US-PFIZER INC-2017153655

PATIENT
  Age: 10 Year
  Sex: Female

DRUGS (3)
  1. CHILDRENS TYLENOL [Concomitant]
     Active Substance: ACETAMINOPHEN
     Indication: PYREXIA
     Dosage: ALTERNATING THIS WITH CHILDREN^S ADVIL
  2. CHILDRENS ADVIL [Suspect]
     Active Substance: IBUPROFEN
     Indication: PYREXIA
     Dosage: 300 MG, EVERY 6 HOURS
     Route: 048
     Dates: start: 20170328, end: 2017
  3. TYLENOL [Concomitant]
     Active Substance: ACETAMINOPHEN
     Dosage: UNK
     Dates: start: 20170328, end: 20170330

REACTIONS (13)
  - Oxygen saturation decreased [Recovered/Resolved]
  - Dysgeusia [Unknown]
  - Influenza [Recovering/Resolving]
  - Pneumothorax [Recovered/Resolved]
  - Lip discolouration [Recovered/Resolved]
  - Cyanosis [Unknown]
  - Product taste abnormal [Unknown]
  - Tooth discolouration [Recovered/Resolved]
  - Hypoxia [Unknown]
  - Product colour issue [Recovered/Resolved]
  - Abnormal behaviour [Recovering/Resolving]
  - Pneumonia [Recovered/Resolved]
  - Incorrect dose administered [Recovered/Resolved]

NARRATIVE: CASE EVENT DATE: 2017
